FAERS Safety Report 8082060-2 (Version None)
Quarter: 2012Q1

REPORT INFORMATION
  Report Type: 
  Country: None (occurrence: None)
  Receive Date: 20120127
  Receipt Date: 20110224
  Transmission Date: 20120608
  Serious: No
  Sender: FDA-Public Use
  Company Number: US-ABBOTT-11P-163-0707877-00

PATIENT
  Sex: Male
  Weight: 81.72 kg

DRUGS (1)
  1. HUMIRA [Suspect]
     Indication: ARTHRITIS
     Route: 058
     Dates: start: 20100301

REACTIONS (5)
  - EYE IRRITATION [None]
  - INJECTION SITE VESICLES [None]
  - INCORRECT ROUTE OF DRUG ADMINISTRATION [None]
  - DEVICE MALFUNCTION [None]
  - EYE PAIN [None]
